FAERS Safety Report 23787718 (Version 34)
Quarter: 2025Q1

REPORT INFORMATION
  Report Type: Spontaneous
  Country: CA (occurrence: CA)
  Receive Date: 20240426
  Receipt Date: 20250311
  Transmission Date: 20250408
  Serious: Yes (Death, Life-Threatening, Hospitalization, Disabling, Other)
  Sender: PFIZER
  Company Number: CA-TAKEDA-2024TUS037780

PATIENT
  Age: 80 Year
  Sex: Male
  Weight: 69 kg

DRUGS (288)
  1. PREVACID [Suspect]
     Active Substance: LANSOPRAZOLE
     Indication: Antacid therapy
  2. PREVACID [Suspect]
     Active Substance: LANSOPRAZOLE
     Indication: Intentional product misuse
     Dosage: 30 MILLIGRAM, QD
     Route: 048
  3. PREVACID [Suspect]
     Active Substance: LANSOPRAZOLE
     Indication: Off label use
     Dosage: 30 MILLIGRAM, QD
  4. PREVACID [Suspect]
     Active Substance: LANSOPRAZOLE
     Dosage: 1 DOSAGE FORM, Q6HR
     Route: 050
  5. PREVACID [Suspect]
     Active Substance: LANSOPRAZOLE
     Route: 048
  6. PREVACID [Suspect]
     Active Substance: LANSOPRAZOLE
     Route: 065
  7. PREVACID [Suspect]
     Active Substance: LANSOPRAZOLE
     Route: 054
  8. PREVACID [Suspect]
     Active Substance: LANSOPRAZOLE
     Dosage: 30 MILLIGRAM, QD
     Route: 048
  9. PREVACID [Suspect]
     Active Substance: LANSOPRAZOLE
     Dosage: 30 MILLIGRAM, QD
     Route: 048
  10. PREVACID [Suspect]
     Active Substance: LANSOPRAZOLE
     Route: 048
  11. PREVACID [Suspect]
     Active Substance: LANSOPRAZOLE
     Route: 048
  12. PREVACID [Suspect]
     Active Substance: LANSOPRAZOLE
     Indication: Antacid therapy
     Dosage: 30 MILLIGRAM, QD
     Route: 065
  13. LANSOPRAZOLE [Suspect]
     Active Substance: LANSOPRAZOLE
     Indication: Antacid therapy
     Route: 065
  14. LANSOPRAZOLE [Suspect]
     Active Substance: LANSOPRAZOLE
     Indication: Intentional product misuse
     Dosage: 30 MG, 1X/DAY
     Route: 065
  15. LANSOPRAZOLE [Suspect]
     Active Substance: LANSOPRAZOLE
     Indication: Off label use
     Dosage: 30 MG, 1X/DAY
     Route: 048
  16. LANSOPRAZOLE [Suspect]
     Active Substance: LANSOPRAZOLE
     Indication: Gastric pH decreased
     Dosage: 30 MG, 1X/DAY
     Route: 065
  17. LANSOPRAZOLE [Suspect]
     Active Substance: LANSOPRAZOLE
     Dosage: 30 MG, 1X/DAY
  18. LANSOPRAZOLE [Suspect]
     Active Substance: LANSOPRAZOLE
     Route: 048
  19. LANSOPRAZOLE [Suspect]
     Active Substance: LANSOPRAZOLE
     Dosage: UNK UNK, QD
     Route: 048
  20. LANSOPRAZOLE [Suspect]
     Active Substance: LANSOPRAZOLE
     Dosage: 60 MG, 1X/DAY
     Route: 048
  21. LANSOPRAZOLE [Suspect]
     Active Substance: LANSOPRAZOLE
     Dosage: UNK UNK, Q6HR
     Route: 048
  22. LANSOPRAZOLE [Suspect]
     Active Substance: LANSOPRAZOLE
     Dosage: UNK UNK, QD
     Route: 048
  23. LANSOPRAZOLE [Suspect]
     Active Substance: LANSOPRAZOLE
     Dosage: 30 GRAM, QD
     Route: 065
  24. LANSOPRAZOLE [Suspect]
     Active Substance: LANSOPRAZOLE
     Dosage: 30 GRAM, QD
     Route: 065
  25. LEUCOVORIN CALCIUM [Suspect]
     Active Substance: LEUCOVORIN CALCIUM
     Indication: Vitamin supplementation
     Route: 065
  26. POTASSIUM CHLORIDE [Suspect]
     Active Substance: POTASSIUM CHLORIDE
     Indication: Constipation
  27. POTASSIUM CHLORIDE [Suspect]
     Active Substance: POTASSIUM CHLORIDE
     Dosage: 17 MILLIGRAM, QD
     Route: 048
  28. POTASSIUM CHLORIDE [Suspect]
     Active Substance: POTASSIUM CHLORIDE
     Dosage: 17 GRAM, QD
     Route: 048
  29. POTASSIUM CHLORIDE [Suspect]
     Active Substance: POTASSIUM CHLORIDE
     Dosage: 17 MILLIGRAM, 1 EVERY 1 (DAYS)
  30. DEXTROSE [Suspect]
     Active Substance: DEXTROSE MONOHYDRATE
     Indication: Nutritional supplementation
     Dosage: 12.5 MILLIGRAM, QD
     Route: 065
  31. DEXTROSE [Suspect]
     Active Substance: DEXTROSE MONOHYDRATE
     Route: 042
  32. DEXTROSE [Suspect]
     Active Substance: DEXTROSE MONOHYDRATE
     Route: 054
  33. DEXTROSE [Suspect]
     Active Substance: DEXTROSE MONOHYDRATE
  34. SODIUM BICARBONATE [Suspect]
     Active Substance: SODIUM BICARBONATE
     Indication: Nutritional supplementation
     Route: 065
  35. HYDROCORTISONE [Suspect]
     Active Substance: HYDROCORTISONE
     Indication: Angioedema
     Route: 065
  36. HYDROMORPHONE HYDROCHLORIDE [Suspect]
     Active Substance: HYDROMORPHONE HYDROCHLORIDE
     Indication: Intentional product misuse
     Dosage: 6 MG, 4X/DAY
  37. HYDROMORPHONE HYDROCHLORIDE [Suspect]
     Active Substance: HYDROMORPHONE HYDROCHLORIDE
     Indication: Analgesic therapy
  38. DALTEPARIN SODIUM [Suspect]
     Active Substance: DALTEPARIN SODIUM
     Indication: Pulmonary embolism
  39. DALTEPARIN SODIUM [Suspect]
     Active Substance: DALTEPARIN SODIUM
     Route: 042
  40. DALTEPARIN SODIUM [Suspect]
     Active Substance: DALTEPARIN SODIUM
     Route: 048
  41. PHYTONADIONE [Suspect]
     Active Substance: PHYTONADIONE
     Indication: Vitamin supplementation
     Route: 042
  42. PHYTONADIONE [Suspect]
     Active Substance: PHYTONADIONE
     Indication: Off label use
     Dosage: 5 MILLIGRAM, QD
     Route: 042
  43. PHYTONADIONE [Suspect]
     Active Substance: PHYTONADIONE
     Dosage: 5 MILLIGRAM, QD
     Route: 042
  44. PHYTONADIONE [Suspect]
     Active Substance: PHYTONADIONE
     Route: 042
  45. PHYTONADIONE [Suspect]
     Active Substance: PHYTONADIONE
     Dosage: 5 MILLIGRAM, QD
     Route: 042
  46. PHYTONADIONE [Suspect]
     Active Substance: PHYTONADIONE
     Dosage: 5 MILLIGRAM, QD
     Route: 042
  47. PHYTONADIONE [Suspect]
     Active Substance: PHYTONADIONE
     Dosage: 5 MILLIGRAM, QD
  48. PHYTONADIONE [Suspect]
     Active Substance: PHYTONADIONE
     Dosage: 5 MILLIGRAM, QD
  49. FOSRENOL [Suspect]
     Active Substance: LANTHANUM CARBONATE
     Indication: Blood phosphorus increased
     Route: 048
  50. FOSRENOL [Suspect]
     Active Substance: LANTHANUM CARBONATE
     Indication: Hyperphosphataemia
     Dosage: 550 MILLIGRAM, QD
     Route: 048
  51. FOSRENOL [Suspect]
     Active Substance: LANTHANUM CARBONATE
     Route: 048
  52. LANTHANUM CARBONATE [Suspect]
     Active Substance: LANTHANUM CARBONATE
     Indication: Blood phosphorus increased
     Route: 054
  53. LANTHANUM CARBONATE [Suspect]
     Active Substance: LANTHANUM CARBONATE
     Indication: Hyperphosphataemia
     Route: 054
  54. LANTHANUM CARBONATE [Suspect]
     Active Substance: LANTHANUM CARBONATE
     Dosage: 500 MILLIGRAM, QD
     Route: 048
  55. LANTHANUM CARBONATE [Suspect]
     Active Substance: LANTHANUM CARBONATE
     Route: 065
  56. LANTHANUM CARBONATE [Suspect]
     Active Substance: LANTHANUM CARBONATE
     Route: 054
  57. LANTHANUM CARBONATE [Suspect]
     Active Substance: LANTHANUM CARBONATE
     Route: 054
  58. LANTHANUM CARBONATE [Suspect]
     Active Substance: LANTHANUM CARBONATE
     Dosage: 500 MILLIGRAM, QD
     Route: 048
  59. LANTHANUM CARBONATE [Suspect]
     Active Substance: LANTHANUM CARBONATE
     Dosage: 500 MILLIGRAM, QD
     Route: 048
  60. LANTHANUM CARBONATE [Suspect]
     Active Substance: LANTHANUM CARBONATE
     Route: 054
  61. LANTHANUM CARBONATE [Suspect]
     Active Substance: LANTHANUM CARBONATE
     Dosage: 500 MILLIGRAM, QD
     Route: 048
  62. LANTHANUM CARBONATE [Suspect]
     Active Substance: LANTHANUM CARBONATE
     Dosage: 500 MILLIGRAM, QD
     Route: 048
  63. LANTHANUM CARBONATE [Suspect]
     Active Substance: LANTHANUM CARBONATE
     Dosage: 500 MG, 3X/DAY
     Route: 048
  64. LANTHANUM CARBONATE [Suspect]
     Active Substance: LANTHANUM CARBONATE
     Dosage: 550 MICROGRAM, Q8HR
     Route: 048
  65. LANTHANUM CARBONATE [Suspect]
     Active Substance: LANTHANUM CARBONATE
     Dosage: 550 UG, 1X/DAY
     Route: 048
  66. LANTHANUM CARBONATE [Suspect]
     Active Substance: LANTHANUM CARBONATE
     Dosage: 500 UG, 1X/DAY
     Route: 048
  67. LANTHANUM CARBONATE [Suspect]
     Active Substance: LANTHANUM CARBONATE
     Dosage: 550 MG, 1X/DAY
     Route: 048
  68. DEXLANSOPRAZOLE [Suspect]
     Active Substance: DEXLANSOPRAZOLE
     Dosage: 60 MILLIGRAM, QD (ENTERIC COATED TABLET)
     Route: 065
  69. DEXLANSOPRAZOLE [Suspect]
     Active Substance: DEXLANSOPRAZOLE
     Route: 065
  70. DEXLANSOPRAZOLE [Suspect]
     Active Substance: DEXLANSOPRAZOLE
     Dosage: 6DF, Q6HR, ORAL
     Route: 048
  71. ONDANSETRON [Suspect]
     Active Substance: ONDANSETRON
     Indication: Nausea
     Dosage: 36 MG, 1X/DAY
     Route: 042
  72. ONDANSETRON [Suspect]
     Active Substance: ONDANSETRON
     Indication: Vomiting
     Dosage: 4 MILLIGRAM, Q8HR
     Route: 042
  73. ONDANSETRON [Suspect]
     Active Substance: ONDANSETRON
     Indication: Off label use
     Dosage: 12 MILLIGRAM, Q8HR
     Route: 042
  74. ONDANSETRON [Suspect]
     Active Substance: ONDANSETRON
     Route: 042
  75. ONDANSETRON [Suspect]
     Active Substance: ONDANSETRON
     Dosage: 24 MILLIGRAM, Q8HR
     Route: 042
  76. ONDANSETRON [Suspect]
     Active Substance: ONDANSETRON
     Dosage: 40 MG, 3X/DAY
     Route: 042
  77. ONDANSETRON [Suspect]
     Active Substance: ONDANSETRON
     Dosage: 41.14 MILLIGRAM, Q8HR
     Route: 042
  78. ONDANSETRON [Suspect]
     Active Substance: ONDANSETRON
     Dosage: 4 MILLIGRAM, QD
     Route: 042
     Dates: start: 20200601
  79. ONDANSETRON [Suspect]
     Active Substance: ONDANSETRON
     Dosage: 24 MG, 1X/DAY
     Route: 042
  80. ONDANSETRON [Suspect]
     Active Substance: ONDANSETRON
     Dosage: 1 DOSAGE FORM, Q8HR
     Route: 042
  81. ONDANSETRON [Suspect]
     Active Substance: ONDANSETRON
     Dosage: 12 MILLIGRAM, QD
     Route: 042
  82. ONDANSETRON [Suspect]
     Active Substance: ONDANSETRON
     Dosage: 36 MILLIGRAM, Q8HR
     Route: 042
  83. ONDANSETRON [Suspect]
     Active Substance: ONDANSETRON
     Dosage: 36 MILLIGRAM, TID
     Route: 042
  84. ONDANSETRON [Suspect]
     Active Substance: ONDANSETRON
     Dosage: 123.3 MG, 1X/DAY
     Route: 042
  85. ONDANSETRON [Suspect]
     Active Substance: ONDANSETRON
     Dosage: 17 DF, 1X/DAY
     Route: 042
  86. ONDANSETRON [Suspect]
     Active Substance: ONDANSETRON
     Route: 042
  87. ONDANSETRON [Suspect]
     Active Substance: ONDANSETRON
     Route: 042
  88. ONDANSETRON [Suspect]
     Active Substance: ONDANSETRON
     Route: 042
  89. ONDANSETRON [Suspect]
     Active Substance: ONDANSETRON
     Route: 042
  90. ONDANSETRON [Suspect]
     Active Substance: ONDANSETRON
     Route: 042
  91. ONDANSETRON [Suspect]
     Active Substance: ONDANSETRON
     Route: 042
  92. ONDANSETRON [Suspect]
     Active Substance: ONDANSETRON
     Dosage: 8 MILLIGRAM, Q8HR
     Route: 042
  93. ONDANSETRON [Suspect]
     Active Substance: ONDANSETRON
     Dosage: UNK UNK, Q8HR
     Route: 042
  94. ONDANSETRON [Suspect]
     Active Substance: ONDANSETRON
     Dosage: 4 MG, 3X/DAY
     Route: 042
  95. ONDANSETRON [Suspect]
     Active Substance: ONDANSETRON
     Dosage: 12 MG, 3X/DAY
     Route: 042
  96. ONDANSETRON [Suspect]
     Active Substance: ONDANSETRON
     Route: 042
  97. ONDANSETRON [Suspect]
     Active Substance: ONDANSETRON
     Route: 042
  98. ONDANSETRON [Suspect]
     Active Substance: ONDANSETRON
     Route: 042
  99. ONDANSETRON [Suspect]
     Active Substance: ONDANSETRON
     Route: 042
  100. ONDANSETRON [Suspect]
     Active Substance: ONDANSETRON
     Route: 042
  101. ONDANSETRON [Suspect]
     Active Substance: ONDANSETRON
     Route: 042
  102. ONDANSETRON [Suspect]
     Active Substance: ONDANSETRON
     Route: 042
  103. ONDANSETRON [Suspect]
     Active Substance: ONDANSETRON
     Route: 042
  104. ONDANSETRON [Suspect]
     Active Substance: ONDANSETRON
     Route: 042
  105. ONDANSETRON [Suspect]
     Active Substance: ONDANSETRON
     Route: 042
  106. ONDANSETRON [Suspect]
     Active Substance: ONDANSETRON
     Route: 042
  107. ONDANSETRON [Suspect]
     Active Substance: ONDANSETRON
     Route: 042
  108. ONDANSETRON [Suspect]
     Active Substance: ONDANSETRON
     Route: 042
  109. ONDANSETRON [Suspect]
     Active Substance: ONDANSETRON
     Route: 042
  110. ONDANSETRON [Suspect]
     Active Substance: ONDANSETRON
     Route: 042
  111. ONDANSETRON [Suspect]
     Active Substance: ONDANSETRON
     Route: 042
  112. ONDANSETRON [Suspect]
     Active Substance: ONDANSETRON
     Route: 042
  113. ONDANSETRON [Suspect]
     Active Substance: ONDANSETRON
     Route: 042
  114. ONDANSETRON [Suspect]
     Active Substance: ONDANSETRON
     Route: 042
  115. ONDANSETRON [Suspect]
     Active Substance: ONDANSETRON
     Route: 042
  116. ONDANSETRON [Suspect]
     Active Substance: ONDANSETRON
     Route: 042
  117. ONDANSETRON [Suspect]
     Active Substance: ONDANSETRON
     Route: 042
  118. ONDANSETRON [Suspect]
     Active Substance: ONDANSETRON
     Route: 065
  119. ONDANSETRON [Suspect]
     Active Substance: ONDANSETRON
     Dosage: 1 DF, QD, IV
     Route: 042
  120. ONDANSETRON [Suspect]
     Active Substance: ONDANSETRON
     Dosage: 1 DF, QD
  121. CALCIUM CARBONATE [Suspect]
     Active Substance: CALCIUM CARBONATE
     Indication: Vitamin supplementation
     Route: 065
  122. CALCIUM CARBONATE [Suspect]
     Active Substance: CALCIUM CARBONATE
     Indication: Intentional product misuse
     Route: 065
  123. THEOPHYLLINE [Suspect]
     Active Substance: THEOPHYLLINE
     Indication: Chronic obstructive pulmonary disease
     Dosage: 4 DOSAGE FORM, QD
     Route: 065
  124. THEOPHYLLINE [Suspect]
     Active Substance: THEOPHYLLINE
     Indication: Intentional product misuse
     Dosage: 1 DOSAGE FORM, Q6HR
     Route: 065
  125. THEOPHYLLINE [Suspect]
     Active Substance: THEOPHYLLINE
     Indication: Off label use
     Route: 065
  126. ALUMINUM HYDROXIDE\MAGNESIUM HYDROXIDE [Suspect]
     Active Substance: ALUMINUM HYDROXIDE\MAGNESIUM HYDROXIDE
     Indication: Constipation
     Route: 054
  127. ALUMINUM HYDROXIDE\MAGNESIUM HYDROXIDE [Suspect]
     Active Substance: ALUMINUM HYDROXIDE\MAGNESIUM HYDROXIDE
     Indication: Intentional product misuse
  128. POLYETHYLENE GLYCOLS [Suspect]
     Active Substance: POLYETHYLENE GLYCOLS
     Indication: Constipation
     Route: 065
  129. POLYETHYLENE GLYCOLS [Suspect]
     Active Substance: POLYETHYLENE GLYCOLS
     Indication: Iron deficiency
     Route: 048
  130. POLYETHYLENE GLYCOLS [Suspect]
     Active Substance: POLYETHYLENE GLYCOLS
     Indication: Nutritional supplementation
     Dosage: 17 GRAM, QD
     Route: 048
  131. POLYETHYLENE GLYCOLS [Suspect]
     Active Substance: POLYETHYLENE GLYCOLS
     Indication: Off label use
     Route: 048
  132. POLYETHYLENE GLYCOLS [Suspect]
     Active Substance: POLYETHYLENE GLYCOLS
     Route: 048
  133. POLYETHYLENE GLYCOLS [Suspect]
     Active Substance: POLYETHYLENE GLYCOLS
     Dosage: 3 MILLIGRAM, 1/WEEK
     Route: 048
  134. POLYETHYLENE GLYCOLS [Suspect]
     Active Substance: POLYETHYLENE GLYCOLS
     Route: 050
  135. POLYETHYLENE GLYCOLS [Suspect]
     Active Substance: POLYETHYLENE GLYCOLS
     Route: 048
  136. POLYETHYLENE GLYCOLS [Suspect]
     Active Substance: POLYETHYLENE GLYCOLS
     Route: 065
  137. POLYETHYLENE GLYCOLS [Suspect]
     Active Substance: POLYETHYLENE GLYCOLS
     Dosage: 3 MILLIGRAM, 1 EVERY 1 (WEEKS)
     Route: 065
  138. POLYETHYLENE GLYCOLS [Suspect]
     Active Substance: POLYETHYLENE GLYCOLS
     Dosage: 3 MILLIGRAM, QD
     Route: 065
  139. POLYETHYLENE GLYCOLS [Suspect]
     Active Substance: POLYETHYLENE GLYCOLS
     Route: 042
  140. METRONIDAZOLE [Suspect]
     Active Substance: METRONIDAZOLE
     Indication: Bacterial infection
     Route: 065
  141. METRONIDAZOLE [Suspect]
     Active Substance: METRONIDAZOLE
     Indication: Intentional product misuse
     Dosage: 500 MILLIGRAM, Q8HR
     Route: 048
  142. METRONIDAZOLE [Suspect]
     Active Substance: METRONIDAZOLE
     Indication: Off label use
     Dosage: 500 MILLIGRAM, QD
     Route: 048
  143. METRONIDAZOLE [Suspect]
     Active Substance: METRONIDAZOLE
     Dosage: 1500 MILLIGRAM, QD
     Route: 048
  144. METRONIDAZOLE [Suspect]
     Active Substance: METRONIDAZOLE
     Dosage: 1500 MILLIGRAM, TID
     Route: 048
  145. METRONIDAZOLE [Suspect]
     Active Substance: METRONIDAZOLE
     Dosage: 500 MILLIGRAM, TID
     Route: 048
  146. METRONIDAZOLE [Suspect]
     Active Substance: METRONIDAZOLE
     Dosage: 500 MILLIGRAM,3 EVERY 1 (DAYS)
     Route: 065
  147. METRONIDAZOLE [Suspect]
     Active Substance: METRONIDAZOLE
     Route: 065
  148. METRONIDAZOLE [Suspect]
     Active Substance: METRONIDAZOLE
     Route: 065
  149. METRONIDAZOLE [Suspect]
     Active Substance: METRONIDAZOLE
     Dosage: 1500 MICROGRAM, TID
     Route: 048
  150. METRONIDAZOLE [Suspect]
     Active Substance: METRONIDAZOLE
     Dosage: 500 MICROGRAM, TID
     Route: 048
  151. METRONIDAZOLE [Suspect]
     Active Substance: METRONIDAZOLE
     Dosage: 1500 MICROGRAM, TID
     Route: 048
  152. METRONIDAZOLE [Suspect]
     Active Substance: METRONIDAZOLE
     Dosage: 500 MICROGRAM, TID
     Route: 048
  153. METRONIDAZOLE [Suspect]
     Active Substance: METRONIDAZOLE
     Route: 065
  154. METRONIDAZOLE [Suspect]
     Active Substance: METRONIDAZOLE
     Route: 065
  155. METRONIDAZOLE [Suspect]
     Active Substance: METRONIDAZOLE
     Route: 065
  156. METRONIDAZOLE [Suspect]
     Active Substance: METRONIDAZOLE
     Route: 065
  157. METRONIDAZOLE [Suspect]
     Active Substance: METRONIDAZOLE
     Route: 048
  158. METRONIDAZOLE [Suspect]
     Active Substance: METRONIDAZOLE
     Route: 048
  159. METRONIDAZOLE [Suspect]
     Active Substance: METRONIDAZOLE
     Route: 048
  160. PHYTONADIONE [Suspect]
     Active Substance: PHYTONADIONE
     Indication: Vitamin supplementation
     Route: 042
  161. PHYTONADIONE [Suspect]
     Active Substance: PHYTONADIONE
     Indication: Off label use
     Dosage: 5 MILLIGRAM, QD
     Route: 042
  162. PHYTONADIONE [Suspect]
     Active Substance: PHYTONADIONE
     Route: 065
  163. ASCORBIC ACID\SODIUM ASCORBATE [Suspect]
     Active Substance: ASCORBIC ACID\SODIUM ASCORBATE
     Indication: Constipation
     Route: 065
  164. ASCORBIC ACID\SODIUM ASCORBATE [Suspect]
     Active Substance: ASCORBIC ACID\SODIUM ASCORBATE
     Indication: Vitamin supplementation
     Dosage: 17 GRAM, QD
     Route: 048
  165. ASCORBIC ACID\SODIUM ASCORBATE [Suspect]
     Active Substance: ASCORBIC ACID\SODIUM ASCORBATE
     Dosage: 17 GRAM,1 EVERY 1 (DAYS)
     Route: 048
  166. ASCORBIC ACID\SODIUM ASCORBATE [Suspect]
     Active Substance: ASCORBIC ACID\SODIUM ASCORBATE
     Dosage: 17 GRAM, QD
     Route: 048
  167. SODIUM CITRATE [Suspect]
     Active Substance: SODIUM CITRATE
     Indication: Thrombosis
     Route: 065
  168. SODIUM CITRATE [Suspect]
     Active Substance: SODIUM CITRATE
     Indication: Anticoagulant therapy
     Route: 042
  169. SODIUM CITRATE [Suspect]
     Active Substance: SODIUM CITRATE
     Route: 065
  170. SODIUM CITRATE [Suspect]
     Active Substance: SODIUM CITRATE
     Dosage: 2.5 MILLILITER, QD
     Route: 065
  171. SODIUM CITRATE [Suspect]
     Active Substance: SODIUM CITRATE
     Dosage: 2.5 MILLIGRAM, QD
     Route: 065
  172. SODIUM CITRATE [Suspect]
     Active Substance: SODIUM CITRATE
     Dosage: 2 GRAM, QD
     Route: 065
  173. SODIUM CITRATE [Suspect]
     Active Substance: SODIUM CITRATE
     Dosage: 2.5 MILLILITER, QD
     Route: 065
  174. SODIUM CITRATE [Suspect]
     Active Substance: SODIUM CITRATE
     Dosage: 2.5 MILLILITER, QD
     Route: 065
  175. SODIUM CITRATE [Suspect]
     Active Substance: SODIUM CITRATE
     Dosage: 2.5 MILLILITER, QD
     Route: 065
  176. SODIUM CITRATE [Suspect]
     Active Substance: SODIUM CITRATE
     Dosage: 2.5 MILLILITER, QD
     Route: 065
  177. AMLODIPINE BESYLATE [Suspect]
     Active Substance: AMLODIPINE BESYLATE
     Indication: Ventricular fibrillation
     Route: 065
  178. AMLODIPINE BESYLATE [Suspect]
     Active Substance: AMLODIPINE BESYLATE
     Indication: Drug therapy
     Dosage: UNK, QD
     Route: 065
  179. AMLODIPINE BESYLATE [Suspect]
     Active Substance: AMLODIPINE BESYLATE
     Dosage: 150 MG, 1X/DAY
     Route: 065
  180. AMLODIPINE BESYLATE [Suspect]
     Active Substance: AMLODIPINE BESYLATE
     Dosage: 150 MG, 1X/DAY
     Route: 065
  181. MOVIPREP [Suspect]
     Active Substance: ASCORBIC ACID\POLYETHYLENE GLYCOL 3350\POTASSIUM CHLORIDE\SODIUM ASCORBATE\SODIUM CHLORIDE\SODIUM SU
     Indication: Constipation
     Route: 065
  182. POLYETHYLENE GLYCOL 4000 [Suspect]
     Active Substance: POLYETHYLENE GLYCOL 4000
     Indication: Iron deficiency
     Route: 065
  183. POLYETHYLENE GLYCOL 4000 [Suspect]
     Active Substance: POLYETHYLENE GLYCOL 4000
     Indication: Constipation
     Dosage: 3 MILLIGRAM, 1/WEEK
     Route: 065
  184. POLYETHYLENE GLYCOL 4000 [Suspect]
     Active Substance: POLYETHYLENE GLYCOL 4000
     Indication: Nutritional supplementation
  185. DEXTROSE\SODIUM CHLORIDE [Suspect]
     Active Substance: DEXTROSE\SODIUM CHLORIDE
     Indication: Nutritional supplementation
     Route: 042
  186. DEXTROSE\SODIUM CHLORIDE [Suspect]
     Active Substance: DEXTROSE\SODIUM CHLORIDE
     Dosage: 12.5 GRAM, QD
     Route: 042
  187. DEXTROSE\SODIUM CHLORIDE [Suspect]
     Active Substance: DEXTROSE\SODIUM CHLORIDE
     Route: 042
  188. DEXTROSE\SODIUM CHLORIDE [Suspect]
     Active Substance: DEXTROSE\SODIUM CHLORIDE
     Route: 042
  189. DEXILANT [Suspect]
     Active Substance: DEXLANSOPRAZOLE
     Dosage: 60 MILLIGRAM, QD (SLOW RELEASE CAPSULES)
     Route: 048
  190. ONDANSETRON [Suspect]
     Active Substance: ONDANSETRON
     Indication: Nausea
     Route: 065
  191. ONDANSETRON [Suspect]
     Active Substance: ONDANSETRON
     Indication: Vomiting
     Route: 065
  192. ONDANSETRON [Suspect]
     Active Substance: ONDANSETRON
     Dosage: UNK UNK, Q8HR
     Route: 065
  193. ONDANSETRON [Suspect]
     Active Substance: ONDANSETRON
     Dosage: 4 MILLIGRAM, QD
     Route: 065
  194. ONDANSETRON [Suspect]
     Active Substance: ONDANSETRON
     Route: 065
  195. ONDANSETRON [Suspect]
     Active Substance: ONDANSETRON
     Dosage: UNK UNK, Q8HR
     Route: 065
  196. ONDANSETRON [Suspect]
     Active Substance: ONDANSETRON
     Dosage: 8 MILLIGRAM, Q8HR
     Route: 065
  197. ONDANSETRON [Suspect]
     Active Substance: ONDANSETRON
     Dosage: 12 MILLIGRAM, Q8HR
     Route: 065
  198. ONDANSETRON [Suspect]
     Active Substance: ONDANSETRON
     Dosage: 36 MILLIGRAM, Q8HR
     Route: 065
  199. ONDANSETRON [Suspect]
     Active Substance: ONDANSETRON
     Dosage: 4 MILLIGRAM, Q8HR
     Route: 065
  200. ONDANSETRON [Suspect]
     Active Substance: ONDANSETRON
     Dosage: 40 MILLIGRAM, Q8HR
     Route: 065
  201. ONDANSETRON [Suspect]
     Active Substance: ONDANSETRON
     Dosage: 1 DOSAGE FORM, QD
     Route: 048
  202. ONDANSETRON [Suspect]
     Active Substance: ONDANSETRON
     Dosage: 4 MILLIGRAM, Q8HR
     Route: 065
  203. ONDANSETRON [Suspect]
     Active Substance: ONDANSETRON
     Dosage: 12 DOSAGE FORM, QD
     Route: 048
  204. ONDANSETRON [Suspect]
     Active Substance: ONDANSETRON
     Dosage: 40 MG, 1X/DAY
     Route: 065
  205. ONDANSETRON [Suspect]
     Active Substance: ONDANSETRON
     Dosage: 3 MILLIGRAM, QD
     Route: 048
  206. ONDANSETRON [Suspect]
     Active Substance: ONDANSETRON
     Dosage: 17 DOSAGE FORM, QD
     Route: 065
  207. ONDANSETRON [Suspect]
     Active Substance: ONDANSETRON
  208. MESALAMINE [Suspect]
     Active Substance: MESALAMINE
     Route: 065
  209. RAMIPRIL [Suspect]
     Active Substance: RAMIPRIL
     Indication: Asthma
     Route: 048
  210. RAMIPRIL [Suspect]
     Active Substance: RAMIPRIL
     Indication: Prophylaxis
  211. EFINACONAZOLE [Suspect]
     Active Substance: EFINACONAZOLE
     Route: 061
  212. IPRATROPIUM BROMIDE [Suspect]
     Active Substance: IPRATROPIUM BROMIDE
     Indication: Sleep disorder therapy
     Dosage: UNK, 1X/DAY
     Route: 065
  213. IPRATROPIUM BROMIDE [Suspect]
     Active Substance: IPRATROPIUM BROMIDE
     Indication: Dyspnoea
  214. IPRATROPIUM BROMIDE [Suspect]
     Active Substance: IPRATROPIUM BROMIDE
     Indication: Off label use
     Dosage: UNK, 1X/DAY
     Route: 065
  215. IPRATROPIUM BROMIDE [Suspect]
     Active Substance: IPRATROPIUM BROMIDE
     Indication: Intentional product misuse
     Route: 050
  216. IPRATROPIUM BROMIDE [Suspect]
     Active Substance: IPRATROPIUM BROMIDE
  217. IPRATROPIUM BROMIDE [Suspect]
     Active Substance: IPRATROPIUM BROMIDE
  218. NITROGLYCERIN [Suspect]
     Active Substance: NITROGLYCERIN
     Route: 065
  219. ALBUTEROL SULFATE [Suspect]
     Active Substance: ALBUTEROL SULFATE
     Indication: Prophylaxis
     Route: 065
  220. ALBUTEROL SULFATE [Suspect]
     Active Substance: ALBUTEROL SULFATE
     Indication: Off label use
     Dosage: UNK, 1X/DAY
     Route: 065
  221. ALBUTEROL SULFATE [Suspect]
     Active Substance: ALBUTEROL SULFATE
     Indication: Intentional product misuse
     Dosage: UNK, 4X/DAY
     Route: 065
  222. ALBUTEROL SULFATE [Suspect]
     Active Substance: ALBUTEROL SULFATE
     Indication: Chronic obstructive pulmonary disease
  223. ALBUTEROL SULFATE [Suspect]
     Active Substance: ALBUTEROL SULFATE
     Indication: Asthma
  224. ALBUTEROL SULFATE [Suspect]
     Active Substance: ALBUTEROL SULFATE
     Route: 065
  225. HYDROCORTISONE [Suspect]
     Active Substance: HYDROCORTISONE
     Route: 065
  226. DEXLANSOPRAZOLE [Suspect]
     Active Substance: DEXLANSOPRAZOLE
     Dosage: 60 MILLIGRAM, QD (SLOW RELEASE CAPSULES)
  227. CALCIUM [Suspect]
     Active Substance: CALCIUM
     Indication: Intentional product misuse
     Route: 065
  228. ACETAMINOPHEN [Suspect]
     Active Substance: ACETAMINOPHEN
     Indication: Analgesic therapy
     Dosage: 650 MG, 1X/DAY
     Route: 048
  229. ACETAMINOPHEN [Suspect]
     Active Substance: ACETAMINOPHEN
     Indication: Intentional product misuse
     Dosage: 5 MG, 1X/DAY
     Route: 048
  230. ACETAMINOPHEN [Suspect]
     Active Substance: ACETAMINOPHEN
     Indication: Off label use
  231. ACETAMINOPHEN [Suspect]
     Active Substance: ACETAMINOPHEN
     Indication: Analgesic therapy
     Dosage: 650 MG, 1X/DAY
     Route: 048
  232. ACETAMINOPHEN [Suspect]
     Active Substance: ACETAMINOPHEN
     Indication: Intentional product misuse
     Route: 065
  233. ACETAMINOPHEN [Suspect]
     Active Substance: ACETAMINOPHEN
     Indication: Off label use
     Dosage: 650 MILLIGRAM
     Route: 048
  234. ACETAMINOPHEN [Suspect]
     Active Substance: ACETAMINOPHEN
     Dosage: 650 MG, 1X/DAY
     Route: 048
  235. ACETAMINOPHEN [Suspect]
     Active Substance: ACETAMINOPHEN
     Dosage: 0.5 MILLILITER, QD
     Route: 048
  236. ACETAMINOPHEN [Suspect]
     Active Substance: ACETAMINOPHEN
     Dosage: 0.5 MILLILITER, QD
     Route: 048
  237. ASCORBIC ACID\SODIUM ASCORBATE [Suspect]
     Active Substance: ASCORBIC ACID\SODIUM ASCORBATE
     Indication: Vitamin supplementation
     Dosage: 170 G, 1X/DAY
     Route: 065
  238. ASCORBIC ACID\SODIUM ASCORBATE [Suspect]
     Active Substance: ASCORBIC ACID\SODIUM ASCORBATE
     Indication: Intentional product misuse
  239. ASCORBIC ACID\SODIUM ASCORBATE [Suspect]
     Active Substance: ASCORBIC ACID\SODIUM ASCORBATE
     Indication: Constipation
  240. POLYETHYLENE GLYCOL 3350 AND ELECTROLYTES [Suspect]
     Active Substance: POLYETHYLENE GLYCOL 3350\POTASSIUM CHLORIDE\SODIUM BICARBONATE\SODIUM CHLORIDE\SODIUM SULFATE
     Indication: Constipation
     Dosage: 3 G, WEEKLY
     Route: 048
  241. CORTISONE [Suspect]
     Active Substance: CORTISONE
     Route: 065
  242. ALUMINUM HYDROXIDE\MAGNESIUM TRISILICATE [Suspect]
     Active Substance: ALUMINUM HYDROXIDE\MAGNESIUM TRISILICATE
     Indication: Constipation
     Route: 065
  243. ALUMINUM HYDROXIDE\MAGNESIUM TRISILICATE [Suspect]
     Active Substance: ALUMINUM HYDROXIDE\MAGNESIUM TRISILICATE
     Indication: Intentional product misuse
  244. DOBUTAMINE [Suspect]
     Active Substance: DOBUTAMINE HYDROCHLORIDE
     Indication: Cardiogenic shock
     Route: 042
  245. HEPARIN CALCIUM [Suspect]
     Active Substance: HEPARIN CALCIUM
     Indication: Anticoagulant therapy
     Route: 065
  246. SODIUM PICOSULFATE [Suspect]
     Active Substance: SODIUM PICOSULFATE
     Indication: Constipation
     Route: 054
  247. VITAMIN K1 [Suspect]
     Active Substance: PHYTONADIONE
     Indication: Vitamin supplementation
  248. ASIAN GINSENG [Suspect]
     Active Substance: ASIAN GINSENG
     Indication: Nutritional supplementation
     Route: 065
  249. FLUTICASONE FUROATE [Suspect]
     Active Substance: FLUTICASONE FUROATE
     Route: 048
  250. .ALPHA.-TOCOPHEROL, DL-\FISH OIL [Suspect]
     Active Substance: .ALPHA.-TOCOPHEROL, DL-\FISH OIL
  251. PYRIDOXINE [Suspect]
     Active Substance: PYRIDOXINE
     Indication: Vitamin supplementation
     Route: 048
  252. VASOPRESSIN [Suspect]
     Active Substance: VASOPRESSIN
     Indication: Drug therapy
  253. SUCROSE [Suspect]
     Active Substance: SUCROSE
     Indication: Iron deficiency
     Dosage: 20 MG 1/WEEK VIA IV
  254. DEXTROSE [Suspect]
     Active Substance: DEXTROSE MONOHYDRATE
  255. CITRIC ACID [Suspect]
     Active Substance: CITRIC ACID MONOHYDRATE
     Indication: Nutritional supplementation
  256. ALLOPURINOL SODIUM [Suspect]
     Active Substance: ALLOPURINOL SODIUM
     Indication: Blood uric acid increased
     Dosage: 1 DOSAGE FOR QD
     Route: 048
  257. ALLOPURINOL SODIUM [Suspect]
     Active Substance: ALLOPURINOL SODIUM
     Dosage: 100 MG, 1X/DAY
     Route: 048
  258. ALLOPURINOL SODIUM [Suspect]
     Active Substance: ALLOPURINOL SODIUM
     Route: 048
  259. DIPYRONE [Suspect]
     Active Substance: DIPYRONE
     Indication: Vitamin supplementation
  260. SIMVASTATIN [Suspect]
     Active Substance: SIMVASTATIN
     Indication: Blood cholesterol increased
     Dosage: 40 MG QD
     Route: 048
  261. SODIUM FERRIC GLUCONATE COMPLEX [Suspect]
     Active Substance: SODIUM FERRIC GLUCONATE COMPLEX
     Indication: Iron deficiency
     Dosage: IN SUCROSE INJECTION 4.64 MG 1/WEEK IV
  262. HERBALS [Suspect]
     Active Substance: HERBALS
     Indication: Constipation
  263. COUMADIN [Suspect]
     Active Substance: WARFARIN SODIUM
     Indication: Thrombosis
     Dosage: 2 GRAM QD
     Route: 048
  264. HERBALS\PLANTAGO OVATA SEED COAT [Suspect]
     Active Substance: HERBALS\PLANTAGO OVATA SEED COAT
     Indication: Vitamin supplementation
     Dosage: 5 MG QD IV
  265. TAMIFLU [Suspect]
     Active Substance: OSELTAMIVIR PHOSPHATE
     Indication: Chronic obstructive pulmonary disease
  266. TAMIFLU [Suspect]
     Active Substance: OSELTAMIVIR PHOSPHATE
  267. BETA CAROTENE [Suspect]
     Active Substance: BETA CAROTENE
  268. BIOTIN [Suspect]
     Active Substance: BIOTIN
  269. BISACODYL [Suspect]
     Active Substance: BISACODYL
  270. FLUTICASONE FUROATE [Suspect]
     Active Substance: FLUTICASONE FUROATE
  271. INSULIN ASPART [Suspect]
     Active Substance: INSULIN ASPART
     Dosage: 1 DF, 1X/DAY
  272. INSULIN ASPART [Suspect]
     Active Substance: INSULIN ASPART
     Dosage: 1 DF, 1X/DAY
     Route: 065
  273. VILANTEROL TRIFENATATE [Suspect]
     Active Substance: VILANTEROL TRIFENATATE
  274. GABAPENTIN [Suspect]
     Active Substance: GABAPENTIN
     Route: 048
  275. GABAPENTIN [Suspect]
     Active Substance: GABAPENTIN
     Route: 048
  276. GABAPENTIN [Suspect]
     Active Substance: GABAPENTIN
     Route: 048
  277. ATROVENT [Suspect]
     Active Substance: IPRATROPIUM BROMIDE
     Indication: Dyspnoea
     Dosage: UNK, 4X/DAY (INHALATION USE)
  278. ATROVENT [Suspect]
     Active Substance: IPRATROPIUM BROMIDE
     Dosage: 1 DF, 3X/DAY
  279. ATROVENT [Suspect]
     Active Substance: IPRATROPIUM BROMIDE
     Dosage: 4 DF, 1X/DAY
     Route: 050
  280. ATROVENT [Suspect]
     Active Substance: IPRATROPIUM BROMIDE
     Route: 065
  281. ATROVENT [Suspect]
     Active Substance: IPRATROPIUM BROMIDE
     Dosage: 3 DF, 1X/DAY
  282. ATROVENT [Suspect]
     Active Substance: IPRATROPIUM BROMIDE
     Dosage: 1 DF, 1X/DAY
  283. ATROVENT [Suspect]
     Active Substance: IPRATROPIUM BROMIDE
     Dosage: 1 DF, 1X/DAY
  284. ATROVENT [Suspect]
     Active Substance: IPRATROPIUM BROMIDE
     Dosage: 1 DF, 4X/DAY
  285. ATROVENT [Suspect]
     Active Substance: IPRATROPIUM BROMIDE
     Dosage: 4 DF, 1X/DAY
  286. ATROVENT [Suspect]
     Active Substance: IPRATROPIUM BROMIDE
     Dosage: 1 DF, 4X/DAY
  287. ATROVENT [Suspect]
     Active Substance: IPRATROPIUM BROMIDE
     Dosage: 4 DF, 1X/DAY
     Route: 065
  288. DISODIUM HYDROGEN CITRATE [Concomitant]
     Active Substance: DISODIUM HYDROGEN CITRATE

REACTIONS (29)
  - Anaemia [Fatal]
  - Ventricular fibrillation [Fatal]
  - Chronic obstructive pulmonary disease [Fatal]
  - Abdominal distension [Fatal]
  - Aortic stenosis [Fatal]
  - End stage renal disease [Fatal]
  - Gout [Fatal]
  - Hyperlipidaemia [Fatal]
  - Activated partial thromboplastin time prolonged [Fatal]
  - Sleep disorder therapy [Fatal]
  - Ulcer [Fatal]
  - Hypertension [Fatal]
  - Hyponatraemia [Fatal]
  - Hyperphosphataemia [Fatal]
  - Bacterial infection [Fatal]
  - Analgesic therapy [Fatal]
  - Aspartate aminotransferase [Fatal]
  - Liver function test [Fatal]
  - Total lung capacity decreased [Fatal]
  - Pleural effusion [Fatal]
  - Lower respiratory tract infection [Fatal]
  - Blood calcium increased [Fatal]
  - Oedema peripheral [Fatal]
  - Blood creatinine increased [Fatal]
  - Troponin increased [Fatal]
  - Musculoskeletal stiffness [Fatal]
  - Incorrect route of product administration [Unknown]
  - Off label use [Unknown]
  - Drug ineffective for unapproved indication [Unknown]

NARRATIVE: CASE EVENT DATE: 20200101
